FAERS Safety Report 8271014-9 (Version None)
Quarter: 2012Q2

REPORT INFORMATION
  Report Type: 
  Country: None (occurrence: None)
  Receive Date: 20120410
  Receipt Date: 20120316
  Transmission Date: 20120825
  Serious: Yes (Other)
  Sender: FDA-Public Use
  Company Number: US-ROCHE-718963

PATIENT
  Sex: Male
  Weight: 79.4 kg

DRUGS (3)
  1. ACCUTANE [Suspect]
     Route: 048
     Dates: start: 20011120, end: 20020117
  2. PREDNISONE TAB [Concomitant]
  3. ACCUTANE [Suspect]
     Indication: ACNE
     Route: 048
     Dates: start: 19981001, end: 19991201

REACTIONS (8)
  - RHEUMATOID ARTHRITIS [None]
  - PROCTITIS [None]
  - ARTHRALGIA [None]
  - GASTROINTESTINAL INJURY [None]
  - INFLAMMATORY BOWEL DISEASE [None]
  - INTERVERTEBRAL DISC PROTRUSION [None]
  - BACK PAIN [None]
  - COLITIS ULCERATIVE [None]
